FAERS Safety Report 6056624-1 (Version None)
Quarter: 2009Q1

REPORT INFORMATION
  Report Type: 
  Country: None (occurrence: None)
  Receive Date: 20090126
  Receipt Date: 20090126
  Transmission Date: 20090719
  Serious: Yes (Hospitalization, Disabling)
  Sender: FDA-Public Use
  Company Number: None

PATIENT
  Sex: Male
  Weight: 98.4306 kg

DRUGS (6)
  1. PROLIXIN [Suspect]
     Dosage: INJECTED MONTHLY DAILY LG. DOSE 1 - DAILY
     Dates: start: 19820101
  2. PROLIXIN [Suspect]
     Dosage: INJECTED MONTHLY DAILY LG. DOSE 1 - DAILY
     Dates: start: 19870101
  3. PROLIXIN [Suspect]
     Dosage: INJECTED MONTHLY DAILY LG. DOSE 1 - DAILY
     Dates: start: 19880101
  4. PROLIXIN [Suspect]
     Dosage: INJECTED MONTHLY DAILY LG. DOSE 1 - DAILY
     Dates: start: 19890101
  5. PROLIXIN [Suspect]
     Dosage: INJECTED MONTHLY DAILY LG. DOSE 1 - DAILY
     Dates: start: 19990101
  6. PROLIXIN [Suspect]
     Dosage: INJECTED MONTHLY DAILY LG. DOSE 1 - DAILY
     Dates: start: 20020101

REACTIONS (5)
  - GINGIVAL PAIN [None]
  - PAIN [None]
  - TOOTH FRACTURE [None]
  - TOOTH LOSS [None]
  - TOOTHACHE [None]
